FAERS Safety Report 10071385 (Version 1)
Quarter: 2014Q2

REPORT INFORMATION
  Report Type: Spontaneous
  Country: GB (occurrence: GB)
  Receive Date: 20140410
  Receipt Date: 20140410
  Transmission Date: 20141212
  Serious: Yes (Other)
  Sender: FDA-Public Use
  Company Number: GB-WATSON-2014-06763

PATIENT
  Age: 68 Year
  Sex: Male
  Weight: 121 kg

DRUGS (24)
  1. OXYBUTYNIN [Suspect]
     Indication: PRODUCT USED FOR UNKNOWN INDICATION
     Dosage: UNK
     Route: 065
  2. AMLODIPINE [Concomitant]
     Indication: PRODUCT USED FOR UNKNOWN INDICATION
     Dosage: UNK
     Route: 065
     Dates: start: 20140106
  3. AMLODIPINE [Concomitant]
     Dosage: UNK
     Route: 065
     Dates: start: 20131129, end: 20131227
  4. ASPIRIN [Concomitant]
     Indication: PRODUCT USED FOR UNKNOWN INDICATION
     Dosage: UNK
     Route: 065
     Dates: start: 20140106
  5. ASPIRIN [Concomitant]
     Dosage: UNK
     Route: 065
     Dates: start: 20131129, end: 20131227
  6. BISOPROLOL [Concomitant]
     Indication: PRODUCT USED FOR UNKNOWN INDICATION
     Dosage: UNK
     Route: 065
     Dates: start: 20131129, end: 20131227
  7. BISOPROLOL [Concomitant]
     Dosage: UNK
     Route: 065
     Dates: start: 20140106
  8. CLONAZEPAM [Concomitant]
     Indication: PRODUCT USED FOR UNKNOWN INDICATION
     Dosage: UNK
     Route: 065
     Dates: start: 20140106
  9. CLONAZEPAM [Concomitant]
     Dosage: UNK
     Route: 065
     Dates: start: 20131129, end: 20131227
  10. FINASTERIDE [Concomitant]
     Indication: PRODUCT USED FOR UNKNOWN INDICATION
     Dosage: UNK
     Route: 065
     Dates: start: 20131129, end: 20131227
  11. FINASTERIDE [Concomitant]
     Dosage: UNK
     Route: 065
     Dates: start: 20140204
  12. FUROSEMIDE [Concomitant]
     Indication: PRODUCT USED FOR UNKNOWN INDICATION
     Dosage: UNK
     Route: 065
     Dates: start: 20131129
  13. GABAPENTIN [Concomitant]
     Indication: PRODUCT USED FOR UNKNOWN INDICATION
     Dosage: UNK
     Route: 065
     Dates: start: 20131129
  14. GAVISCON ADVANCE [Concomitant]
     Indication: PRODUCT USED FOR UNKNOWN INDICATION
     Dosage: UNK
     Route: 065
     Dates: start: 20140106, end: 20140122
  15. GAVISCON ADVANCE [Concomitant]
     Dosage: UNK
     Route: 065
     Dates: start: 20140204, end: 20140220
  16. ISOTARD XL [Concomitant]
     Indication: PRODUCT USED FOR UNKNOWN INDICATION
     Dosage: UNK
     Route: 065
     Dates: start: 20131129, end: 20131227
  17. ISOTARD XL [Concomitant]
     Dosage: UNK
     Route: 065
     Dates: start: 20140106
  18. LISINOPRIL [Concomitant]
     Indication: PRODUCT USED FOR UNKNOWN INDICATION
     Dosage: UNK
     Route: 065
     Dates: start: 20140106
  19. LISINOPRIL [Concomitant]
     Dosage: UNK
     Route: 065
     Dates: start: 20131129, end: 20131227
  20. RANITIDINE [Concomitant]
     Indication: PRODUCT USED FOR UNKNOWN INDICATION
     Dosage: UNK
     Route: 065
     Dates: start: 20131129, end: 20131229
  21. SIMVASTATIN [Concomitant]
     Indication: PRODUCT USED FOR UNKNOWN INDICATION
     Dosage: UNK
     Route: 065
     Dates: start: 20131129
  22. TAMSULOSIN HYDROCHLORIDE [Concomitant]
     Indication: PRODUCT USED FOR UNKNOWN INDICATION
     Dosage: UNK
     Route: 065
     Dates: start: 20131129
  23. TRAMADOL [Concomitant]
     Indication: PRODUCT USED FOR UNKNOWN INDICATION
     Dosage: UNK
     Route: 065
     Dates: start: 20131129, end: 20131229
  24. TRAMADOL [Concomitant]
     Dosage: UNK
     Route: 065
     Dates: start: 20140204

REACTIONS (1)
  - Dyspnoea [Recovered/Resolved]
